FAERS Safety Report 23950165 (Version 1)
Quarter: 2024Q2

REPORT INFORMATION
  Report Type: Spontaneous
  Country: GB (occurrence: GB)
  Receive Date: 20240607
  Receipt Date: 20240607
  Transmission Date: 20240716
  Serious: Yes (Life-Threatening, Other)
  Sender: FDA-Public Use
  Company Number: None

PATIENT
  Age: 67 Year
  Sex: Male
  Weight: 74 kg

DRUGS (5)
  1. ROCURONIUM [Suspect]
     Active Substance: ROCURONIUM BROMIDE
     Indication: General anaesthesia
     Dosage: 70 MILLIGRAM, QD (70 MG BOLUS ONCE)
     Route: 065
     Dates: start: 20240605, end: 20240605
  2. AMOXICILLIN\CLAVULANIC ACID [Suspect]
     Active Substance: AMOXICILLIN\CLAVULANIC ACID
     Indication: Surgery
     Dosage: 1.2 GRAM
     Route: 065
     Dates: start: 20240605, end: 20240605
  3. GENTAMICIN [Suspect]
     Active Substance: GENTAMICIN
     Indication: Surgery
     Dosage: 160
     Route: 065
     Dates: start: 20240605, end: 20240605
  4. BUPIVACAINE [Suspect]
     Active Substance: BUPIVACAINE
     Indication: Product used for unknown indication
     Dosage: 2.4 MILLILITER
     Route: 065
     Dates: start: 20240605, end: 20240605
  5. DIAMORPHINE [Suspect]
     Active Substance: DIAMORPHINE
     Indication: Product used for unknown indication
     Dosage: 0.6 MILLIGRAM
     Route: 065
     Dates: start: 20240605, end: 20240605

REACTIONS (1)
  - Circulatory collapse [Recovering/Resolving]

NARRATIVE: CASE EVENT DATE: 20240605
